FAERS Safety Report 12790228 (Version 1)
Quarter: 2016Q3

REPORT INFORMATION
  Report Type: Spontaneous
  Country: US (occurrence: US)
  Receive Date: 20160928
  Receipt Date: 20160928
  Transmission Date: 20161109
  Serious: Yes (Other)
  Sender: FDA-Public Use
  Company Number: US-DSJP-DSU-2016-131828

PATIENT

DRUGS (1)
  1. BENICAR [Suspect]
     Active Substance: OLMESARTAN MEDOXOMIL

REACTIONS (24)
  - Cerebral palsy [Unknown]
  - End stage renal disease [Unknown]
  - Foetal exposure during pregnancy [Unknown]
  - Patent ductus arteriosus [Unknown]
  - Atrial septal defect [Unknown]
  - Oligohydramnios [Unknown]
  - Renal replacement therapy [Unknown]
  - Intestinal malrotation [Unknown]
  - Necrotising colitis [Unknown]
  - Seizure [Unknown]
  - Encephalomalacia [Unknown]
  - Haemorrhage intracranial [Unknown]
  - Tricuspid valve incompetence [Unknown]
  - Arachnoid cyst [Unknown]
  - Microcephaly [Unknown]
  - Pulmonary hypoplasia [Unknown]
  - Acute kidney injury [Unknown]
  - Neonatal hypotension [Unknown]
  - Hypertension neonatal [Unknown]
  - Nipple disorder [Unknown]
  - Hypocalvaria [Unknown]
  - Deafness neurosensory [Unknown]
  - Vesicoureteric reflux [Unknown]
  - Nephrogenic diabetes insipidus [Unknown]
